FAERS Safety Report 16596548 (Version 1)
Quarter: 2019Q3

REPORT INFORMATION
  Report Type: Spontaneous
  Country: US (occurrence: US)
  Receive Date: 20190718
  Receipt Date: 20190718
  Transmission Date: 20191004
  Serious: No
  Sender: FDA-Public Use
  Company Number: None

PATIENT

DRUGS (1)
  1. EXTENDED PHENYTOIN SODIUM, USP [Suspect]
     Active Substance: PHENYTOIN SODIUM

REACTIONS (2)
  - Product label confusion [None]
  - Product dosage form issue [None]
